FAERS Safety Report 4677338-6 (Version None)
Quarter: 2005Q2

REPORT INFORMATION
  Report Type: 
  Country: None (occurrence: None)
  Receive Date: 20050523
  Receipt Date: 20050510
  Transmission Date: 20051028
  Serious: Yes (Hospitalization)
  Sender: FDA-Public Use
  Company Number: 2005-00906

PATIENT
  Age: 80 Year
  Sex: Female

DRUGS (1)
  1. IMMUCYST [Suspect]
     Indication: BLADDER CANCER
     Dosage: 81.0 MG
     Route: 043
     Dates: start: 20050316, end: 20050504

REACTIONS (2)
  - BOVINE TUBERCULOSIS [None]
  - DRUG HYPERSENSITIVITY [None]
